FAERS Safety Report 23065612 (Version 1)
Quarter: 2023Q4

REPORT INFORMATION
  Report Type: Spontaneous
  Country: IR (occurrence: IR)
  Receive Date: 20231014
  Receipt Date: 20231014
  Transmission Date: 20240110
  Serious: Yes (Hospitalization, Other)
  Sender: FDA-Public Use
  Company Number: IR-NOVITIUMPHARMA-2023IRNVP01777

PATIENT
  Age: 32 Year
  Sex: Male

DRUGS (1)
  1. SILDENAFIL CITRATE [Suspect]
     Active Substance: SILDENAFIL CITRATE
     Indication: Product used for unknown indication

REACTIONS (2)
  - Retinal artery occlusion [Unknown]
  - Retinal vein occlusion [Unknown]
